FAERS Safety Report 24368325 (Version 1)
Quarter: 2024Q3

REPORT INFORMATION
  Report Type: Spontaneous
  Country: US (occurrence: US)
  Receive Date: 20240926
  Receipt Date: 20240926
  Transmission Date: 20241017
  Serious: No
  Sender: SANOFI AVENTIS
  Company Number: US-SA-2024SA276152

PATIENT
  Age: 7 Year
  Sex: Female
  Weight: 22.73 kg

DRUGS (1)
  1. DUPIXENT [Suspect]
     Active Substance: DUPILUMAB
     Indication: Dermatitis atopic
     Dosage: 300MG EVERY 4 WEEKS
     Route: 058
     Dates: start: 20240709

REACTIONS (3)
  - Skin haemorrhage [Unknown]
  - Scratch [Unknown]
  - Pruritus [Not Recovered/Not Resolved]

NARRATIVE: CASE EVENT DATE: 20240901
